FAERS Safety Report 9372747 (Version 1)
Quarter: 2013Q2

REPORT INFORMATION
  Report Type: Report from Study
  Country: US (occurrence: US)
  Receive Date: 20130627
  Receipt Date: 20130627
  Transmission Date: 20140414
  Serious: Yes (Other)
  Sender: FDA-Public Use
  Company Number: US-MYLANLABS-2013S1007302

PATIENT
  Age: 78 Year
  Sex: Female

DRUGS (5)
  1. CLOZAPINE TABLETS [Suspect]
     Route: 048
     Dates: start: 201302, end: 20130327
  2. AMLODIPINE [Concomitant]
     Route: 048
  3. TRAZODONE [Concomitant]
     Route: 048
  4. PROMETHAZINE [Concomitant]
     Route: 048
  5. ZOLPIDEM [Concomitant]
     Route: 048

REACTIONS (2)
  - Granulocytopenia [Not Recovered/Not Resolved]
  - Leukopenia [Not Recovered/Not Resolved]
